FAERS Safety Report 7987545-2 (Version None)
Quarter: 2011Q4

REPORT INFORMATION
  Report Type: 
  Country: None (occurrence: None)
  Receive Date: 20111216
  Receipt Date: 20111031
  Transmission Date: 20120403
  Serious: No
  Sender: FDA-Public Use
  Company Number: US-BRISTOL-MYERS SQUIBB COMPANY-16206773

PATIENT
  Age: 28 Year
  Sex: Male

DRUGS (2)
  1. ABILIFY [Suspect]
     Indication: IRRITABILITY
     Dosage: TAKING FOR 5 YEARS
  2. ABILIFY [Suspect]
     Indication: AUTISM
     Dosage: TAKING FOR 5 YEARS

REACTIONS (1)
  - WEIGHT INCREASED [None]
